FAERS Safety Report 8777734 (Version 2)
Quarter: 2012Q4

REPORT INFORMATION
  Report Type: 
  Country: JP (occurrence: JP)
  Receive Date: 20120911
  Receipt Date: 20120918
  Transmission Date: 20130627
  Serious: Yes (Other)
  Sender: FDA-Public Use
  Company Number: JP-JNJFOC-20120814879

PATIENT
  Age: 64 Year
  Sex: Female

DRUGS (4)
  1. FINIBAX [Suspect]
     Indication: CELLULITIS
     Route: 041
     Dates: start: 20120820, end: 20120902
  2. PENICILLIN G POTASSIUM [Concomitant]
     Indication: CELLULITIS
     Dosage: 2000 KIU/day
     Route: 065
     Dates: start: 20120815, end: 20120819
  3. ROCEPHIN [Concomitant]
     Indication: CELLULITIS
     Route: 065
     Dates: start: 20120815, end: 20120819
  4. FESIN [Concomitant]
     Route: 042

REACTIONS (4)
  - Cholestasis [Unknown]
  - Gallbladder polyp [Unknown]
  - Hyperplastic cholecystopathy [Unknown]
  - Renal cyst [Unknown]
